FAERS Safety Report 13021294 (Version 1)
Quarter: 2016Q4

REPORT INFORMATION
  Report Type: Spontaneous
  Country: FR (occurrence: FR)
  Receive Date: 20161213
  Receipt Date: 20161213
  Transmission Date: 20170207
  Serious: Yes (Other)
  Sender: FDA-Public Use
  Company Number: FR-AMGEN-FRASP2016174185

PATIENT
  Age: 84 Year
  Sex: Female

DRUGS (10)
  1. KARDEGIC [Concomitant]
     Active Substance: ASPIRIN LYSINE
     Dosage: 75 MG, QD
     Route: 048
  2. DOLIPRANE [Concomitant]
     Active Substance: ACETAMINOPHEN
     Dosage: UNK (UP ON REQUEST)
  3. PARACETAMOL [Concomitant]
     Active Substance: ACETAMINOPHEN
     Dosage: UNK (UP ON REQUEST)
  4. LAROXYL [Concomitant]
     Active Substance: AMITRIPTYLINE
     Dosage: 40 MG/ML, QD 5 DROPS (5 DROPS, 1 IN 1 DAY(S))
     Route: 048
  5. PROLIA [Suspect]
     Active Substance: DENOSUMAB
     Indication: OSTEOPOROSIS
     Dosage: 60 MG, Q6MO
     Route: 058
     Dates: start: 201409
  6. ALEPSAL [Concomitant]
     Active Substance: CAFFEINE\PHENOBARBITAL
     Dosage: 100 MG (1 TABLET), QD
     Route: 048
  7. APROVEL [Concomitant]
     Active Substance: IRBESARTAN
     Dosage: 150 MG (1 COATED TABLET), QD
     Route: 048
  8. ALLOPURINOL. [Concomitant]
     Active Substance: ALLOPURINOL
     Dosage: UNK
     Route: 048
  9. FLUOXETINE [Concomitant]
     Active Substance: FLUOXETINE HYDROCHLORIDE
     Dosage: 20 MG, QD
     Route: 048
  10. OROCAL D3 [Concomitant]
     Active Substance: CALCIUM CARBONATE\CHOLECALCIFEROL
     Dosage: UNK UNK, QD

REACTIONS (1)
  - Rash maculo-papular [Recovering/Resolving]

NARRATIVE: CASE EVENT DATE: 20161115
